FAERS Safety Report 12643134 (Version 3)
Quarter: 2018Q1

REPORT INFORMATION
  Report Type: Spontaneous
  Country: US (occurrence: US)
  Receive Date: 20160811
  Receipt Date: 20180319
  Transmission Date: 20180508
  Serious: No
  Sender: FDA-Public Use
  Company Number: US-BIOGEN-2016BI00275189

PATIENT
  Sex: Female

DRUGS (2)
  1. TECFIDERA [Suspect]
     Active Substance: DIMETHYL FUMARATE
     Indication: MULTIPLE SCLEROSIS
     Route: 048
     Dates: start: 20160606
  2. TECFIDERA [Suspect]
     Active Substance: DIMETHYL FUMARATE
     Route: 048
     Dates: start: 20170815

REACTIONS (10)
  - Upper limb fracture [Unknown]
  - Eye haemorrhage [Recovered/Resolved]
  - Concussion [Recovered/Resolved]
  - Injury [Recovered/Resolved]
  - Neuropathy peripheral [Not Recovered/Not Resolved]
  - Fall [Recovered/Resolved]
  - Asthenia [Unknown]
  - Balance disorder [Unknown]
  - Gait disturbance [Recovered/Resolved]
  - Glaucoma [Not Recovered/Not Resolved]

NARRATIVE: CASE EVENT DATE: 2016
